FAERS Safety Report 8835927 (Version 2)
Quarter: 2013Q1

REPORT INFORMATION
  Report Type: Spontaneous
  Country: US (occurrence: US)
  Receive Date: 20121011
  Receipt Date: 20130128
  Transmission Date: 20140127
  Serious: No
  Sender: FDA-Public Use
  Company Number: US-PFIZER INC-2012250322

PATIENT
  Age: 75 Year
  Sex: Female

DRUGS (2)
  1. INLYTA [Suspect]
     Indication: RENAL DISORDER
     Dosage: 5 MG, 2X/DAY
     Route: 048
     Dates: start: 201209
  2. INLYTA [Suspect]
     Indication: RENAL CELL CARCINOMA
     Dosage: 3 MG, 2X/DAY
     Route: 048

REACTIONS (3)
  - Hypercalcaemia [Unknown]
  - Hypomagnesaemia [Recovered/Resolved]
  - Hypocalcaemia [Recovered/Resolved]
